FAERS Safety Report 16331522 (Version 1)
Quarter: 2019Q2

REPORT INFORMATION
  Report Type: Spontaneous
  Country: MX (occurrence: MX)
  Receive Date: 20190412
  Receipt Date: 20190412
  Transmission Date: 20190711
  Serious: Yes (Other)
  Sender: FDA-Public Use
  Company Number: None

PATIENT
  Age: 62 Year
  Sex: Female
  Weight: 58 kg

DRUGS (4)
  1. CLENBUTEROL WITH AMBROXOL [Concomitant]
  2. CLARITHROMYCIN. [Suspect]
     Active Substance: CLARITHROMYCIN
     Indication: PULMONARY CONGESTION
     Dosage: ?          QUANTITY:10 DF DOSAGE FORM;?
     Route: 048
     Dates: start: 20190410, end: 20190412
  3. EXALIV  (PARACETAMOL, PHENYLEPHRINE AND CHLORPHENAMINE [Suspect]
     Active Substance: ACETAMINOPHEN\CHLORPHENIRAMINE MALEATE\PHENYLEPHRINE HYDROCHLORIDE
  4. CEVALIN [Concomitant]

REACTIONS (2)
  - Chest pain [None]
  - Dyspnoea [None]

NARRATIVE: CASE EVENT DATE: 20190412
